FAERS Safety Report 15333970 (Version 1)
Quarter: 2018Q3

REPORT INFORMATION
  Report Type: Spontaneous
  Country: US (occurrence: US)
  Receive Date: 20180825
  Receipt Date: 20180825
  Transmission Date: 20181010
  Serious: Yes (Other)
  Sender: FDA-Public Use
  Company Number: None

PATIENT
  Age: 26 Year
  Sex: Female
  Weight: 67.59 kg

DRUGS (5)
  1. PROBIOTIC [Concomitant]
     Active Substance: PROBIOTICS NOS
  2. MULTI VITAMIN [Concomitant]
     Active Substance: VITAMINS
  3. VITAMIN B12 [Concomitant]
     Active Substance: CYANOCOBALAMIN
  4. IBUPROFEN. [Concomitant]
     Active Substance: IBUPROFEN
  5. MIRENA [Suspect]
     Active Substance: LEVONORGESTREL
     Dates: start: 20180821, end: 20180824

REACTIONS (6)
  - Mood altered [None]
  - Lymphadenopathy [None]
  - Crying [None]
  - Feeling abnormal [None]
  - Emotional disorder [None]
  - Lymph node pain [None]

NARRATIVE: CASE EVENT DATE: 20180824
